FAERS Safety Report 6648159-X (Version None)
Quarter: 2010Q1

REPORT INFORMATION
  Report Type: 
  Country: None (occurrence: None)
  Receive Date: 20100324
  Receipt Date: 20100311
  Transmission Date: 20100710
  Serious: Yes (Hospitalization, Other)
  Sender: FDA-Public Use
  Company Number: FR-ELI_LILLY_AND_COMPANY-FR201001004589

PATIENT
  Age: 73 Year
  Sex: Female

DRUGS (7)
  1. CYMBALTA [Suspect]
     Indication: BIPOLAR I DISORDER
     Dosage: 30 MG, DAILY (1/D)
     Route: 048
     Dates: start: 20091201
  2. CYMBALTA [Suspect]
     Dosage: 60 MG, DAILY (1/D)
     Route: 048
     Dates: end: 20091201
  3. LAMICTAL CD [Concomitant]
     Indication: BIPOLAR I DISORDER
     Dosage: 100 MG, DAILY (1/D)
     Route: 048
  4. AMLODIPINE [Concomitant]
     Dosage: 5 MG, DAILY (1/D)
     Route: 048
  5. LEVOTHYROX [Concomitant]
     Indication: HYPOTHYROIDISM
     Dosage: 175 UG, DAILY (1/D)
     Route: 048
  6. LIPANTHYL [Concomitant]
     Indication: DYSLIPIDAEMIA
     Dosage: 160 MG, DAILY (1/D)
     Route: 048
  7. FORLAX [Concomitant]
     Dosage: UNK, UNKNOWN
     Route: 048

REACTIONS (3)
  - JAUNDICE [None]
  - MIXED LIVER INJURY [None]
  - OFF LABEL USE [None]
